FAERS Safety Report 18694814 (Version 1)
Quarter: 2021Q1

REPORT INFORMATION
  Report Type: Spontaneous
  Country: CN (occurrence: CN)
  Receive Date: 20210104
  Receipt Date: 20210104
  Transmission Date: 20210419
  Serious: Yes (Other)
  Sender: FDA-Public Use
  Company Number: CN-PFIZER INC-2020520580

PATIENT
  Age: 61 Year
  Sex: Female
  Weight: 43 kg

DRUGS (4)
  1. PHARMORUBICIN [Suspect]
     Active Substance: EPIRUBICIN
     Indication: BREAST CANCER FEMALE
     Dosage: 150 MG, 1X/DAY
     Route: 041
     Dates: start: 20201212, end: 20201212
  2. SODIUM CHLORIDE. [Concomitant]
     Active Substance: SODIUM CHLORIDE
     Dosage: 100 ML, 1X/DAY (WITH CYCLOPHOSPHAMIDE)
     Route: 041
     Dates: start: 20201212, end: 20201212
  3. SODIUM CHLORIDE. [Concomitant]
     Active Substance: SODIUM CHLORIDE
     Indication: VEHICLE SOLUTION USE
     Dosage: 250 ML, 1X/DAY (WITH EPIRUBICIN HYDROCHLORIDE)
     Route: 041
     Dates: start: 20201212, end: 20201212
  4. CYCLOPHOSPHAMIDE. [Suspect]
     Active Substance: CYCLOPHOSPHAMIDE
     Indication: BREAST CANCER FEMALE
     Dosage: 1 G, 1X/DAY
     Route: 041
     Dates: start: 20201212, end: 20201212

REACTIONS (5)
  - Discomfort [Recovering/Resolving]
  - Vomiting [Recovering/Resolving]
  - Nausea [Recovering/Resolving]
  - Mouth ulceration [Recovering/Resolving]
  - Dysphagia [Recovering/Resolving]

NARRATIVE: CASE EVENT DATE: 20201212
